FAERS Safety Report 19756878 (Version 1)
Quarter: 2021Q3

REPORT INFORMATION
  Report Type: Spontaneous
  Country: FR (occurrence: FR)
  Receive Date: 20210827
  Receipt Date: 20210827
  Transmission Date: 20211014
  Serious: Yes (Death)
  Sender: FDA-Public Use
  Company Number: FR-TEVA-2021-FR-1944309

PATIENT
  Age: 44 Year
  Sex: Male

DRUGS (7)
  1. DEXAMETHASONE (ACETATE DE) [Concomitant]
     Indication: PLASMA CELL MYELOMA
     Dosage: 40MG ON 06/25, 07/02, 07/09, 07/16
     Route: 048
  2. REVLIMID [Suspect]
     Active Substance: LENALIDOMIDE
     Indication: PLASMA CELL MYELOMA
     Route: 048
     Dates: start: 20210625, end: 20210715
  3. VALACICLOVIR [Suspect]
     Active Substance: VALACYCLOVIR HYDROCHLORIDE
     Indication: PLASMA CELL MYELOMA
     Dosage: 500 MILLIGRAM DAILY;
     Route: 048
     Dates: start: 20210614
  4. BACTRIM [Suspect]
     Active Substance: SULFAMETHOXAZOLE\TRIMETHOPRIM
     Indication: PLASMA CELL MYELOMA
     Dosage: 1 DOSAGE FORMS DAILY; 1CP / D
     Route: 048
     Dates: start: 20210614
  5. VELCADE [Suspect]
     Active Substance: BORTEZOMIB
     Indication: PLASMA CELL MYELOMA
     Route: 058
     Dates: start: 20210625, end: 20210709
  6. ASPIRINE PROTECT 100 MG, COMPRIME GASTRO?RESISTANT [Concomitant]
     Active Substance: ASPIRIN
     Indication: PRODUCT USED FOR UNKNOWN INDICATION
     Dosage: 1 DOSAGE FORMS DAILY; 1CP / D
     Route: 048
     Dates: start: 20210614
  7. AUGMENTIN [Suspect]
     Active Substance: AMOXICILLIN\CLAVULANATE POTASSIUM
     Indication: TOOTH INFECTION
     Dosage: 1 GRAM DAILY;
     Route: 048
     Dates: start: 20210712, end: 20210714

REACTIONS (1)
  - Drug reaction with eosinophilia and systemic symptoms [Fatal]

NARRATIVE: CASE EVENT DATE: 20210713
